FAERS Safety Report 19707690 (Version 1)
Quarter: 2021Q3

REPORT INFORMATION
  Report Type: Spontaneous
  Country: CN (occurrence: CN)
  Receive Date: 20210817
  Receipt Date: 20210817
  Transmission Date: 20211014
  Serious: No
  Sender: FDA-Public Use
  Company Number: CN-ASTRAZENECA-2021A646269

PATIENT
  Age: 31 Year
  Sex: Male
  Weight: 78.2 kg

DRUGS (1)
  1. DAPAGLIFLOZIN. [Suspect]
     Active Substance: DAPAGLIFLOZIN
     Indication: BLOOD GLUCOSE ABNORMAL
     Route: 048
     Dates: start: 20210714, end: 20210720

REACTIONS (1)
  - Ketosis [Not Recovered/Not Resolved]

NARRATIVE: CASE EVENT DATE: 20210715
